FAERS Safety Report 15725168 (Version 1)
Quarter: 2018Q4

REPORT INFORMATION
  Report Type: Spontaneous
  Country: None (occurrence: US)
  Receive Date: 20181215
  Receipt Date: 20181215
  Transmission Date: 20190205
  Serious: No
  Sender: FDA-Public Use
  Company Number: US-UNITED THERAPEUTICS-UNT-2018-019062

PATIENT
  Sex: Female
  Weight: 51.25 kg

DRUGS (3)
  1. REMODULIN [Suspect]
     Active Substance: TREPROSTINIL
     Indication: PULMONARY ARTERIAL HYPERTENSION
     Dosage: 0.052 ?G/KG, CONTINUING
     Route: 058
     Dates: start: 20141103
  2. DILTIAZEM. [Concomitant]
     Active Substance: DILTIAZEM
     Indication: PRODUCT USED FOR UNKNOWN INDICATION
     Route: 065
  3. TRACLEER [Concomitant]
     Active Substance: BOSENTAN
     Indication: PRODUCT USED FOR UNKNOWN INDICATION
     Route: 065

REACTIONS (6)
  - Malaise [Unknown]
  - Abdominal distension [Unknown]
  - Vulvovaginal swelling [Unknown]
  - Insomnia [Unknown]
  - Fatigue [Unknown]
  - Peripheral swelling [Unknown]

NARRATIVE: CASE EVENT DATE: 2018
